FAERS Safety Report 5983297-6 (Version None)
Quarter: 2008Q4

REPORT INFORMATION
  Report Type: 
  Country: None (occurrence: None)
  Receive Date: 20081208
  Receipt Date: 20081007
  Transmission Date: 20090506
  Serious: No
  Sender: FDA-Public Use
  Company Number: US-BAYER-200814008BCC

PATIENT
  Age: 72 Year
  Sex: Male
  Weight: 79 kg

DRUGS (2)
  1. ALEVE-D SINUS + COLD [Suspect]
     Indication: NASAL CONGESTION
     Route: 048
     Dates: start: 20081006, end: 20081006
  2. FLUOXETINE [Concomitant]

REACTIONS (2)
  - MIDDLE INSOMNIA [None]
  - NASAL CONGESTION [None]
